FAERS Safety Report 7757952-1 (Version None)
Quarter: 2011Q3

REPORT INFORMATION
  Report Type: 
  Country: None (occurrence: None)
  Receive Date: 20110919
  Receipt Date: 20110909
  Transmission Date: 20111222
  Serious: Yes (Hospitalization)
  Sender: FDA-Public Use
  Company Number: US-BIOGENIDEC-2010BI028502

PATIENT
  Age: 59 Year
  Sex: Female

DRUGS (4)
  1. AVONEX [Suspect]
     Indication: MULTIPLE SCLEROSIS
     Route: 030
     Dates: start: 20100716, end: 20100101
  2. AVONEX [Suspect]
     Route: 030
     Dates: start: 20100101, end: 20100101
  3. AVONEX [Suspect]
     Route: 030
     Dates: start: 20100101, end: 20100901
  4. AVONEX [Suspect]
     Route: 030
     Dates: start: 20100101, end: 20100101

REACTIONS (2)
  - OVARIAN CANCER STAGE I [None]
  - HYPERHIDROSIS [None]
